FAERS Safety Report 25940236 (Version 1)
Quarter: 2025Q4

REPORT INFORMATION
  Report Type: Spontaneous
  Country: EU (occurrence: None)
  Receive Date: 20251020
  Receipt Date: 20251020
  Transmission Date: 20260118
  Serious: Yes (Other)
  Sender: ORGANON
  Company Number: EU-MLMSERVICE-20251002-PI665291-00177-1

PATIENT
  Age: 5 Month

DRUGS (11)
  1. MOMETASONE FUROATE [Suspect]
     Active Substance: MOMETASONE FUROATE
     Indication: Pemphigoid
     Dosage: UNK
  2. MOMETASONE FUROATE [Suspect]
     Active Substance: MOMETASONE FUROATE
     Dosage: UNK
  3. DEXAMETHASONE [Suspect]
     Active Substance: DEXAMETHASONE
     Indication: Pemphigoid
     Dosage: 0.4 MG/KG BODYWEIGHT (BW)
  4. HYDROCORTISONE [Suspect]
     Active Substance: HYDROCORTISONE
     Indication: Pemphigoid
     Dosage: 0.5 MG/KG BODYWEIGHT
  5. HYDROCORTISONE [Suspect]
     Active Substance: HYDROCORTISONE
     Dosage: 0.3 MG/KG BODYWEIGHT
  6. DAPSONE [Concomitant]
     Active Substance: DAPSONE
     Indication: Pemphigoid
     Dosage: 1 MILLIGRAM/KILOGRAM
  7. DAPSONE [Concomitant]
     Active Substance: DAPSONE
     Dosage: 2 MG/KG BODYWEIGHT
  8. DAPSONE [Concomitant]
     Active Substance: DAPSONE
     Dosage: 1 MILLIGRAM/KILOGRAM
  9. DAPSONE [Concomitant]
     Active Substance: DAPSONE
     Dosage: 0.8 MILLIGRAM/KILOGRAM
  10. CETIRIZINE [Concomitant]
     Active Substance: CETIRIZINE HYDROCHLORIDE
     Indication: Pemphigoid
     Dosage: 0.6 MG/KG BODYWEIGHT
  11. OCTENIDINE HYDROCHLORIDE [Concomitant]
     Active Substance: OCTENIDINE HYDROCHLORIDE
     Indication: Pemphigoid
     Dosage: ON THE ENTIRE INTEGUMENT

REACTIONS (2)
  - Pseudo Cushing^s syndrome [Unknown]
  - Product use issue [Unknown]
